FAERS Safety Report 24138512 (Version 2)
Quarter: 2024Q3

REPORT INFORMATION
  Report Type: Spontaneous
  Country: US (occurrence: US)
  Receive Date: 20240725
  Receipt Date: 20240801
  Transmission Date: 20241016
  Serious: No
  Sender: SEBELA
  Company Number: US-SEBELA IRELAND LIMITED-2023SEB00071

PATIENT
  Sex: Female

DRUGS (1)
  1. PAROXETINE [Suspect]
     Active Substance: PAROXETINE
     Indication: Obsessive-compulsive disorder
     Dosage: UNK

REACTIONS (1)
  - Drug ineffective [Recovered/Resolved]
